FAERS Safety Report 10347426 (Version 1)
Quarter: 2014Q3

REPORT INFORMATION
  Report Type: Spontaneous
  Country: GR (occurrence: GR)
  Receive Date: 20140729
  Receipt Date: 20140729
  Transmission Date: 20150326
  Serious: Yes (Other)
  Sender: FDA-Public Use
  Company Number: GR-PFIZER INC-2014207956

PATIENT
  Age: 74 Year
  Sex: Male

DRUGS (6)
  1. LYRICA [Suspect]
     Active Substance: PREGABALIN
     Dosage: 75 MG, 2X/DAY (1 IN THE MORNING AND 1 IN THE NIGHT)
  2. LYRICA [Suspect]
     Active Substance: PREGABALIN
     Dosage: 225MG, DAILY (75 MG IN THE MORNING AND 2X75 MG IN THE NIGHT)
  3. LYRICA [Suspect]
     Active Substance: PREGABALIN
     Dosage: 75 MG, 1X/DAY
  4. SALOSPIR [Concomitant]
     Active Substance: ASPIRIN\CAFFEINE
  5. INSULIN [Concomitant]
     Active Substance: INSULIN NOS
  6. TARONTAL [Concomitant]

REACTIONS (5)
  - Musculoskeletal disorder [Unknown]
  - Discomfort [Unknown]
  - Dizziness [Unknown]
  - Hypoaesthesia [Unknown]
  - Dyspnoea [Unknown]
